FAERS Safety Report 25214527 (Version 2)
Quarter: 2025Q3

REPORT INFORMATION
  Report Type: Report from Study
  Country: US (occurrence: US)
  Receive Date: 20250418
  Receipt Date: 20250810
  Transmission Date: 20251020
  Serious: Yes (Death)
  Sender: ALEXION PHARMACEUTICALS
  Company Number: US-AstraZeneca-CH-00849925A

PATIENT
  Age: 47 Year
  Sex: Female

DRUGS (1)
  1. OSIMERTINIB [Suspect]
     Active Substance: OSIMERTINIB
     Dosage: 40 MILLIGRAM, QD

REACTIONS (1)
  - Death [Fatal]

NARRATIVE: CASE EVENT DATE: 20250210
